FAERS Safety Report 21722258 (Version 7)
Quarter: 2025Q2

REPORT INFORMATION
  Report Type: Report from Study
  Country: US (occurrence: US)
  Receive Date: 20221213
  Receipt Date: 20250411
  Transmission Date: 20250717
  Serious: Yes (Other)
  Sender: TAKEDA
  Company Number: US-TAKEDA-2022TUS095142

PATIENT
  Sex: Female
  Weight: 138.3 kg

DRUGS (42)
  1. HUMAN IMMUNOGLOBULIN G\HYALURONIDASE RECOMBINANT HUMAN [Suspect]
     Active Substance: HUMAN IMMUNOGLOBULIN G\HYALURONIDASE (HUMAN RECOMBINANT)
     Indication: Immunodeficiency common variable
  2. HUMAN IMMUNOGLOBULIN G\HYALURONIDASE RECOMBINANT HUMAN [Suspect]
     Active Substance: HUMAN IMMUNOGLOBULIN G\HYALURONIDASE (HUMAN RECOMBINANT)
     Dosage: 20 GRAM, Q4WEEKS
  3. HUMAN IMMUNOGLOBULIN G\HYALURONIDASE RECOMBINANT HUMAN [Suspect]
     Active Substance: HUMAN IMMUNOGLOBULIN G\HYALURONIDASE (HUMAN RECOMBINANT)
     Dosage: 40 GRAM, Q2WEEKS
  4. DIPHENHYDRAMINE HYDROCHLORIDE [Concomitant]
     Active Substance: DIPHENHYDRAMINE HYDROCHLORIDE
  5. TRELEGY ELLIPTA [Concomitant]
     Active Substance: FLUTICASONE FUROATE\UMECLIDINIUM BROMIDE\VILANTEROL TRIFENATATE
  6. VITAMIN D3 [Concomitant]
     Active Substance: CHOLECALCIFEROL
  7. BUPROPION [Concomitant]
     Active Substance: BUPROPION
  8. METOPROLOL SUCCINATE [Concomitant]
     Active Substance: METOPROLOL SUCCINATE
  9. POTASSIUM CHLORIDE [Concomitant]
     Active Substance: POTASSIUM CHLORIDE
  10. RESTASIS [Concomitant]
     Active Substance: CYCLOSPORINE
  11. CALCIUM\CHOLECALCIFEROL [Concomitant]
     Active Substance: CALCIUM\CHOLECALCIFEROL
  12. IBUPROFEN [Concomitant]
     Active Substance: IBUPROFEN
  13. ATORVASTATIN CALCIUM [Concomitant]
     Active Substance: ATORVASTATIN CALCIUM
  14. FLUTICASONE PROPIONATE [Concomitant]
     Active Substance: FLUTICASONE PROPIONATE
  15. FUROSEMIDE [Concomitant]
     Active Substance: FUROSEMIDE
  16. HYDROXYCHLOROQUINE SULFATE [Concomitant]
     Active Substance: HYDROXYCHLOROQUINE SULFATE
  17. LISINOPRIL [Concomitant]
     Active Substance: LISINOPRIL
  18. NUCALA [Concomitant]
     Active Substance: MEPOLIZUMAB
  19. Coq [Concomitant]
  20. ZYRTEC [Concomitant]
     Active Substance: CETIRIZINE HYDROCHLORIDE
  21. NOVOLIN L [Concomitant]
     Active Substance: INSULIN HUMAN
  22. GABAPENTIN [Concomitant]
     Active Substance: GABAPENTIN
  23. ACETAMINOPHEN [Concomitant]
     Active Substance: ACETAMINOPHEN
  24. VITAMIN B [Concomitant]
     Active Substance: VITAMIN B
  25. SODIUM CHLORIDE [Concomitant]
     Active Substance: SODIUM CHLORIDE
  26. ALBUTEROL SULFATE [Concomitant]
     Active Substance: ALBUTEROL SULFATE
  27. LEVALBUTEROL [Concomitant]
     Active Substance: LEVALBUTEROL
  28. ZOLPIDEM TARTRATE [Concomitant]
     Active Substance: ZOLPIDEM TARTRATE
  29. BASAGLAR KWIKPEN [Concomitant]
     Active Substance: INSULIN GLARGINE
  30. NEXIUM [Concomitant]
     Active Substance: ESOMEPRAZOLE MAGNESIUM
  31. MAGNESIUM [Concomitant]
     Active Substance: MAGNESIUM
  32. VITAMIN C [Concomitant]
     Active Substance: ASCORBIC ACID
  33. EPIPEN [Concomitant]
     Active Substance: EPINEPHRINE
  34. LEVOTHYROXINE SODIUM [Concomitant]
     Active Substance: LEVOTHYROXINE SODIUM
  35. PATADAY [Concomitant]
     Active Substance: OLOPATADINE HYDROCHLORIDE
     Dosage: UNK UNK, QD
  36. MONTELUKAST SODIUM [Concomitant]
     Active Substance: MONTELUKAST SODIUM
  37. SYSTANE BALANCE [Concomitant]
     Active Substance: PROPYLENE GLYCOL
  38. CLONAZEPAM [Concomitant]
     Active Substance: CLONAZEPAM
  39. EPINEPHRINE [Concomitant]
     Active Substance: EPINEPHRINE
  40. DIPHENHYDRAMINE [Concomitant]
     Active Substance: DIPHENHYDRAMINE
  41. MIRENA [Concomitant]
     Active Substance: LEVONORGESTREL
  42. LIDOCAINE [Concomitant]
     Active Substance: LIDOCAINE

REACTIONS (8)
  - Cancer in remission [Unknown]
  - Colon cancer recurrent [Unknown]
  - Nasopharyngitis [Unknown]
  - Seasonal allergy [Unknown]
  - Sinusitis [Unknown]
  - Urinary tract infection [Unknown]
  - Pulmonary pain [Unknown]
  - Cough [Unknown]
